FAERS Safety Report 16001886 (Version 1)
Quarter: 2019Q1

REPORT INFORMATION
  Report Type: Spontaneous
  Country: PL (occurrence: PL)
  Receive Date: 20190225
  Receipt Date: 20190225
  Transmission Date: 20190418
  Serious: Yes (Other)
  Sender: FDA-Public Use
  Company Number: PL-MYLANLABS-2019M1016011

PATIENT
  Age: 34 Year
  Sex: Female

DRUGS (6)
  1. ERYTHROPOIETIN [Suspect]
     Active Substance: ERYTHROPOIETIN
     Indication: PRODUCT USED FOR UNKNOWN INDICATION
  2. FOLLICLE STIMULATING HORMONE, RECOMBINANT [Suspect]
     Active Substance: FOLLITROPIN
     Indication: OVULATION INDUCTION
  3. PREDNISONE. [Suspect]
     Active Substance: PREDNISONE
     Indication: IMMUNOSUPPRESSION
  4. TACROLIMUS. [Suspect]
     Active Substance: TACROLIMUS
     Indication: IMMUNOSUPPRESSION
     Dosage: TITRATED
  5. AZATHIOPRINE. [Suspect]
     Active Substance: AZATHIOPRINE
     Indication: IMMUNOSUPPRESSION
     Dosage: 75 MG, QD
  6. PREDNISOLONE. [Suspect]
     Active Substance: PREDNISOLONE
     Indication: IMMUNOSUPPRESSION
     Dosage: 4 MG, QD

REACTIONS (5)
  - Thrombocytopenia [Unknown]
  - Live birth [Recovered/Resolved]
  - Anaemia [Unknown]
  - Exposure during pregnancy [Recovered/Resolved]
  - Bone marrow failure [Unknown]
